FAERS Safety Report 25178798 (Version 1)
Quarter: 2025Q2

REPORT INFORMATION
  Report Type: Spontaneous
  Country: US (occurrence: US)
  Receive Date: 20250409
  Receipt Date: 20250409
  Transmission Date: 20250716
  Serious: No
  Sender: TOLMAR
  Company Number: US-TOLMAR, INC.-25US057392

PATIENT
  Sex: Female

DRUGS (1)
  1. ELIGARD [Suspect]
     Active Substance: LEUPROLIDE ACETATE
     Indication: Occupational exposure to product
     Dosage: 7.5 MILLIGRAM, Q 1 MONTH
     Route: 058
     Dates: start: 20250325

REACTIONS (1)
  - Occupational exposure to product [Unknown]

NARRATIVE: CASE EVENT DATE: 20250325
